FAERS Safety Report 4682183-1 (Version None)
Quarter: 2005Q2

REPORT INFORMATION
  Report Type: 
  Country: None (occurrence: None)
  Receive Date: 20050602
  Receipt Date: 20050531
  Transmission Date: 20051028
  Serious: Yes (Hospitalization)
  Sender: FDA-Public Use
  Company Number: THQ2005A00446

PATIENT
  Age: 77 Year
  Sex: Male

DRUGS (6)
  1. LEUPROLIDE ACETATE [Suspect]
     Indication: PROSTATE CANCER
     Dosage: 11.25 MG (11.25 MG, 3 IN 1 M)
     Route: 058
     Dates: start: 20050210
  2. PHENPROCOUMON [Concomitant]
  3. ACETYLSALICYLIC ACID [Concomitant]
  4. METOPROLOL TARTRATE [Concomitant]
  5. FELODIPINE/METOPROLOL (MODILOC) [Concomitant]
  6. CALCIUM BLUBIONATE (CALCIUM GLUCONATE) [Concomitant]

REACTIONS (1)
  - ABDOMINAL HERNIA [None]
